FAERS Safety Report 4443033-1 (Version None)
Quarter: 2004Q3

REPORT INFORMATION
  Report Type: 
  Country: None (occurrence: None)
  Receive Date: 20040903
  Receipt Date: 20040629
  Transmission Date: 20050211
  Serious: Yes (Other)
  Sender: FDA-Public Use
  Company Number: 2004UW13488

PATIENT
  Age: 65 Year
  Sex: Male
  Weight: 77.1115 kg

DRUGS (7)
  1. CRESTOR [Suspect]
     Indication: BLOOD CHOLESTEROL INCREASED
     Dosage: 5 MG PO
     Route: 048
  2. VITAMINS NOS [Concomitant]
  3. FLAX SEED OIL [Concomitant]
  4. ATENOLOL [Concomitant]
  5. LISINOPRIL [Concomitant]
  6. NORVASC [Concomitant]
  7. UNSPECIFIED MUSCLE RELAXER [Concomitant]

REACTIONS (2)
  - GAIT DISTURBANCE [None]
  - MYALGIA [None]
